FAERS Safety Report 6687465-X (Version None)
Quarter: 2010Q2

REPORT INFORMATION
  Report Type: 
  Country: None (occurrence: None)
  Receive Date: 20100419
  Receipt Date: 20100406
  Transmission Date: 20101027
  Serious: Yes (Death, Hospitalization)
  Sender: FDA-Public Use
  Company Number: NL-MEDIMMUNE-MEDI-0010888

PATIENT
  Sex: Male
  Weight: 7.72 kg

DRUGS (1)
  1. SYNAGIS [Suspect]
     Route: 030
     Dates: start: 20100127, end: 20100226

REACTIONS (2)
  - RESPIRATORY DISORDER [None]
  - SEPSIS [None]
